FAERS Safety Report 8475772-X (Version None)
Quarter: 2012Q2

REPORT INFORMATION
  Report Type: 
  Country: None (occurrence: None)
  Receive Date: 20120628
  Receipt Date: 20120618
  Transmission Date: 20120825
  Serious: Yes (Other)
  Sender: FDA-Public Use
  Company Number: AU-WATSON-2012-10802

PATIENT
  Age: 77 Year
  Sex: Female

DRUGS (2)
  1. OXYCODONE HCL [Suspect]
     Indication: ANALGESIC THERAPY
     Dosage: 50 MG, BID
     Route: 065
  2. CITALOPRAM HYDROBROMIDE [Suspect]
     Indication: ANALGESIC THERAPY
     Dosage: 20 MG, DAILY
     Route: 065

REACTIONS (2)
  - SEROTONIN SYNDROME [None]
  - DRUG INTERACTION [None]
